FAERS Safety Report 20507625 (Version 1)
Quarter: 2022Q1

REPORT INFORMATION
  Report Type: Other
  Country: NG (occurrence: None)
  Receive Date: 20220223
  Receipt Date: 20220223
  Transmission Date: 20220424
  Serious: Yes (Other)
  Sender: FDA-Public Use
  Company Number: NG-ROCHE-3034204

PATIENT
  Age: 47 Year
  Sex: Female
  Weight: 123 kg

DRUGS (2)
  1. HERCEPTIN [Suspect]
     Active Substance: TRASTUZUMAB
     Indication: Breast cancer stage II
     Route: 065
  2. PERJETA [Suspect]
     Active Substance: PERTUZUMAB
     Indication: Breast cancer stage II
     Route: 065

REACTIONS (2)
  - Rash erythematous [Unknown]
  - Malaria [Unknown]

NARRATIVE: CASE EVENT DATE: 20220218
